FAERS Safety Report 19909364 (Version 1)
Quarter: 2021Q4

REPORT INFORMATION
  Report Type: Spontaneous
  Country: US (occurrence: US)
  Receive Date: 20211001
  Receipt Date: 20211001
  Transmission Date: 20220303
  Serious: No
  Sender: FDA-Public Use
  Company Number: US-009507513-2109USA006691

PATIENT
  Age: 63 Year
  Sex: Female

DRUGS (4)
  1. PROVENTIL [Suspect]
     Active Substance: ALBUTEROL
     Indication: Chronic obstructive pulmonary disease
     Dosage: INHALE 2 PUFFS AS NEEDED
     Route: 055
     Dates: start: 201306
  2. PROVENTIL [Suspect]
     Active Substance: ALBUTEROL
     Indication: Lung disorder
  3. OMEPRAZOLE [Concomitant]
     Active Substance: OMEPRAZOLE
     Indication: Gastritis
     Dosage: 1 CAPSULE EVERY DAY BEFORE MEAL
     Route: 048
     Dates: start: 20100922
  4. VERAMYST [Concomitant]
     Active Substance: FLUTICASONE FUROATE
     Indication: Hypersensitivity
     Dosage: 2 SPRAY (55 MCG) EVERY DAY IN EACH NOSTRIL
     Route: 045
     Dates: start: 20130614

REACTIONS (1)
  - Product use in unapproved indication [Unknown]

NARRATIVE: CASE EVENT DATE: 20130601
